FAERS Safety Report 8268301 (Version 5)
Quarter: 2014Q1

REPORT INFORMATION
  Report Type: Spontaneous
  Country: US (occurrence: None)
  Receive Date: 20111122
  Receipt Date: 20130107
  Transmission Date: 20141002
  Serious: Yes (Other)
  Sender: FDA-Public Use
  Company Number: PHHY2011US52923

PATIENT
  Age: 57 Year
  Sex: Female

DRUGS (16)
  1. GILENYA [Suspect]
     Indication: MULTIPLE SCLEROSIS
     Dosage: 0.5 MG, DAILY , ORAL
     Route: 048
     Dates: start: 20110608
  2. ALPRAZOLAM (ALPRAZOLAM) [Concomitant]
  3. HALOBETASOL PROPIONATE [Concomitant]
  4. LISINOPRIL W/HYDROCHLOROTHIAZIDE (HYDROCHLOROTHIAZIDE, LISINOPRIL) [Concomitant]
  5. NEUTRONIN (GABAPENTIN) [Concomitant]
  6. ACIDOPHILUS(LACTOBALCILLUS ACIDOPHILUS) [Concomitant]
  7. COENZYME Q10 (UBIDECARENONE) [Concomitant]
  8. GEMFIBROZIL (GEMFIBROZIL) [Concomitant]
  9. GLUCOSAMINE (GLUCOSAMINE) [Concomitant]
  10. LEVSIN (HYOSCYAMINE SULFATE) [Concomitant]
  11. LYRICA (PREGAMBLIN) [Concomitant]
  12. METFORMIN (METFORMIN) [Concomitant]
  13. VITAMIN B6 (PYRIDOXINE HYDROCHLORIDE) [Concomitant]
  14. VITAMIN C (ASCORBIC ACID) [Concomitant]
  15. VITAMIN D (ERGOCALCIFEROL) [Concomitant]
  16. VITAMIN E (TOCOPHEROL) [Concomitant]

REACTIONS (12)
  - Heart rate decreased [None]
  - Sinus bradycardia [None]
  - Sinus arrhythmia [None]
  - Ventricular arrhythmia [None]
  - Glycosylated haemoglobin decreased [None]
  - Full blood count decreased [None]
  - Neutrophil percentage increased [None]
  - Monocyte percentage increased [None]
  - White blood cell count decreased [None]
  - Lymphocyte count decreased [None]
  - Neutrophil count decreased [None]
  - Ventricular extrasystoles [None]
